FAERS Safety Report 10080113 (Version 1)
Quarter: 2014Q2

REPORT INFORMATION
  Report Type: Spontaneous
  Country: DE (occurrence: DE)
  Receive Date: 20140415
  Receipt Date: 20140415
  Transmission Date: 20141212
  Serious: Yes (Other)
  Sender: FDA-Public Use
  Company Number: DE-MYLANLABS-2014S1007779

PATIENT
  Age: 80 Year
  Sex: Female

DRUGS (1)
  1. CARBIDOPA + LEVODOPA [Suspect]
     Indication: PARKINSON^S DISEASE
     Dosage: HALF A TABLET (50/12.25 MG)
     Route: 048
     Dates: start: 20140225, end: 20140326

REACTIONS (3)
  - Bronchitis [Recovered/Resolved]
  - Cystitis [Recovered/Resolved]
  - Haematuria [Recovered/Resolved]
